FAERS Safety Report 5032663-4 (Version None)
Quarter: 2006Q2

REPORT INFORMATION
  Report Type: 
  Country: None (occurrence: None)
  Receive Date: 20060515
  Receipt Date: 20060123
  Transmission Date: 20061013
  Serious: No
  Sender: FDA-Public Use
  Company Number: S06-USA-00296-01

PATIENT
  Age: 79 Year
  Sex: Male

DRUGS (5)
  1. NAMENDA [Suspect]
     Indication: DEMENTIA ALZHEIMER'S TYPE
     Dosage: 5 MG QD PO
     Route: 048
     Dates: start: 20060120
  2. COUMADIN [Concomitant]
  3. ARICEPT [Concomitant]
  4. CELEBREX [Concomitant]
  5. FUROSEMIDE [Concomitant]

REACTIONS (3)
  - ANAL HAEMORRHAGE [None]
  - DIARRHOEA [None]
  - FLATULENCE [None]
